FAERS Safety Report 6058178-2 (Version None)
Quarter: 2009Q1

REPORT INFORMATION
  Report Type: 
  Country: None (occurrence: None)
  Receive Date: 20090127
  Receipt Date: 20090127
  Transmission Date: 20090719
  Serious: Yes (Death)
  Sender: FDA-Public Use
  Company Number: None

PATIENT
  Age: 30 Year
  Sex: Female
  Weight: 62 kg

DRUGS (7)
  1. TRUVADA [Suspect]
     Indication: HIV INFECTION
     Dosage: 200/300MG ONCE A DAY ORALLY
     Dates: start: 20070605, end: 20081228
  2. ALUVIA (LOPINAVIR/RITONAVIR) [Suspect]
     Indication: HIV INFECTION
     Dosage: 500MG TWICE A DAY ORALLY
     Route: 048
     Dates: start: 20070605, end: 20080725
  3. ZIDOVUDINE [Suspect]
     Indication: HIV INFECTION
     Dosage: 300MG TWICE A DAY ORALLY
     Route: 048
     Dates: start: 20080118, end: 20080725
  4. EFAVIRENZ [Suspect]
     Indication: HIV INFECTION
     Dosage: 600MG ONCE A DAY ORALLY
     Route: 048
     Dates: start: 20080725, end: 20081228
  5. BACTRIM [Concomitant]
  6. MULTI-VITAMIN [Concomitant]
  7. 4FDC (ANTI-TUBERCULOSIS) [Concomitant]

REACTIONS (25)
  - ABASIA [None]
  - ACTIVITIES OF DAILY LIVING IMPAIRED [None]
  - APHASIA [None]
  - AREFLEXIA [None]
  - BLOOD PRESSURE INCREASED [None]
  - BLOOD SODIUM DECREASED [None]
  - CEREBRAL MALARIA [None]
  - CRYPTOCOCCUS ANTIGEN POSITIVE [None]
  - DEPRESSED LEVEL OF CONSCIOUSNESS [None]
  - DRUG EXPOSURE DURING PREGNANCY [None]
  - ENCEPHALITIS [None]
  - HEADACHE [None]
  - HEART RATE INCREASED [None]
  - HYDROCEPHALUS [None]
  - LACUNAR INFARCTION [None]
  - MENINGITIS TUBERCULOUS [None]
  - NEUROLOGICAL DECOMPENSATION [None]
  - NEUTROPHIL COUNT INCREASED [None]
  - OCULOGYRIC CRISIS [None]
  - POSTPARTUM HAEMORRHAGE [None]
  - PYREXIA [None]
  - QUADRIPARESIS [None]
  - RESPIRATORY RATE INCREASED [None]
  - SPEECH DISORDER [None]
  - TWIN PREGNANCY [None]
